FAERS Safety Report 19932047 (Version 1)
Quarter: 2021Q4

REPORT INFORMATION
  Report Type: Spontaneous
  Country: CA (occurrence: CA)
  Receive Date: 20211008
  Receipt Date: 20211008
  Transmission Date: 20220303
  Serious: Yes (Other)
  Sender: FDA-Public Use
  Company Number: CA-PBT-000067

PATIENT
  Age: 56 Year
  Weight: 58 kg

DRUGS (26)
  1. TACROLIMUS [Suspect]
     Active Substance: TACROLIMUS
     Indication: Prophylaxis against transplant rejection
     Route: 065
     Dates: start: 20210326, end: 20210329
  2. TACROLIMUS [Suspect]
     Active Substance: TACROLIMUS
     Indication: Prophylaxis against transplant rejection
     Route: 065
     Dates: start: 20210403, end: 20210404
  3. TACROLIMUS [Suspect]
     Active Substance: TACROLIMUS
     Indication: Prophylaxis against transplant rejection
     Route: 065
     Dates: start: 20210407, end: 20210430
  4. TACROLIMUS [Suspect]
     Active Substance: TACROLIMUS
     Indication: Prophylaxis against transplant rejection
     Route: 065
     Dates: start: 20210504, end: 20210520
  5. MYCOPHENOLATE MOFETIL [Concomitant]
     Active Substance: MYCOPHENOLATE MOFETIL
     Indication: Prophylaxis against transplant rejection
     Route: 065
  6. PREDNISONE [Concomitant]
     Active Substance: PREDNISONE
     Indication: Prophylaxis against transplant rejection
     Route: 065
  7. PANTOPRAZOLE [Concomitant]
     Active Substance: PANTOPRAZOLE
     Indication: Product used for unknown indication
     Route: 065
  8. AMLODIPINE [Concomitant]
     Active Substance: AMLODIPINE BESYLATE
     Indication: Product used for unknown indication
     Route: 065
  9. SULFAMETHOXAZOLE [Concomitant]
     Active Substance: SULFAMETHOXAZOLE
     Indication: Product used for unknown indication
     Route: 065
  10. FERROUS FUMARATE [Concomitant]
     Active Substance: FERROUS FUMARATE
     Indication: Product used for unknown indication
     Route: 065
  11. ABACAVIR [Concomitant]
     Active Substance: ABACAVIR
     Indication: HIV infection
     Route: 065
     Dates: start: 20210326, end: 20210401
  12. ABACAVIR [Concomitant]
     Active Substance: ABACAVIR
     Indication: HIV infection
     Route: 065
     Dates: start: 20210405, end: 20210430
  13. ABACAVIR [Concomitant]
     Active Substance: ABACAVIR
     Indication: HIV infection
     Route: 065
     Dates: start: 20210404, end: 20210526
  14. ABACAVIR [Concomitant]
     Active Substance: ABACAVIR
     Indication: HIV infection
     Route: 065
     Dates: start: 2015
  15. DOLUTEGRAVIR [Concomitant]
     Active Substance: DOLUTEGRAVIR
     Indication: HIV infection
     Route: 065
     Dates: start: 20210326, end: 20210401
  16. DOLUTEGRAVIR [Concomitant]
     Active Substance: DOLUTEGRAVIR
     Indication: HIV infection
     Route: 065
     Dates: start: 20210405, end: 20210430
  17. DOLUTEGRAVIR [Concomitant]
     Active Substance: DOLUTEGRAVIR
     Indication: HIV infection
     Route: 065
     Dates: start: 20210504, end: 20210526
  18. DOLUTEGRAVIR [Concomitant]
     Active Substance: DOLUTEGRAVIR
     Indication: HIV infection
     Route: 065
     Dates: start: 2015
  19. DARUNAVIR [Concomitant]
     Active Substance: DARUNAVIR
     Indication: HIV infection
     Route: 065
     Dates: start: 20210326, end: 20210331
  20. DARUNAVIR [Concomitant]
     Active Substance: DARUNAVIR
     Indication: HIV infection
     Route: 065
     Dates: start: 20210405, end: 20210430
  21. DARUNAVIR [Concomitant]
     Active Substance: DARUNAVIR
     Indication: HIV infection
     Route: 065
     Dates: start: 20210504, end: 20210526
  22. DARUNAVIR [Concomitant]
     Active Substance: DARUNAVIR
     Indication: HIV infection
     Route: 065
     Dates: start: 2015
  23. RITONAVIR [Interacting]
     Active Substance: RITONAVIR
     Indication: HIV infection
     Route: 065
     Dates: start: 2021, end: 2021
  24. RITONAVIR [Interacting]
     Active Substance: RITONAVIR
     Indication: HIV infection
     Route: 065
     Dates: start: 20210405, end: 20210430
  25. RITONAVIR [Interacting]
     Active Substance: RITONAVIR
     Indication: HIV infection
     Route: 065
  26. RITONAVIR [Interacting]
     Active Substance: RITONAVIR
     Indication: HIV infection
     Route: 065
     Dates: start: 2015

REACTIONS (5)
  - Toxicity to various agents [Unknown]
  - Complications of transplanted kidney [Recovered/Resolved]
  - Nephropathy toxic [Recovered/Resolved]
  - Drug interaction [Unknown]
  - New onset diabetes after transplantation [Unknown]
